FAERS Safety Report 24651860 (Version 1)
Quarter: 2024Q4

REPORT INFORMATION
  Report Type: Spontaneous
  Country: DE (occurrence: DE)
  Receive Date: 20241122
  Receipt Date: 20241122
  Transmission Date: 20250114
  Serious: Yes (Hospitalization, Other)
  Sender: BIOGEN
  Company Number: DE-BIOGEN-2024BI01291083

PATIENT
  Sex: Female
  Weight: 57 kg

DRUGS (3)
  1. SPINRAZA [Suspect]
     Active Substance: NUSINERSEN
     Indication: Spinal muscular atrophy
     Route: 050
     Dates: start: 201711, end: 202109
  2. SPINRAZA [Suspect]
     Active Substance: NUSINERSEN
     Dosage: OFFLABEL USE VIA CERVICAL PORT
     Route: 050
     Dates: start: 202202
  3. RISDIPLAM [Concomitant]
     Active Substance: RISDIPLAM
     Indication: Spinal muscular atrophy
     Route: 050
     Dates: start: 202109

REACTIONS (5)
  - Respiratory tract procedural complication [Unknown]
  - Scoliosis [Unknown]
  - Procedural complication [Unknown]
  - Obesity [Unknown]
  - Off label use [Unknown]

NARRATIVE: CASE EVENT DATE: 20200101
